FAERS Safety Report 15622301 (Version 3)
Quarter: 2019Q3

REPORT INFORMATION
  Report Type: Report from Study
  Country: US (occurrence: US)
  Receive Date: 20181115
  Receipt Date: 20190708
  Transmission Date: 20191004
  Serious: Yes (Death, Hospitalization)
  Sender: FDA-Public Use
  Company Number: US-EXELIXIS-CABO-18016140

PATIENT
  Age: 63 Year
  Sex: Male
  Weight: 101.59 kg

DRUGS (11)
  1. TRIAMTERENE AND HYDROCHLOROTHIAZIDE [Concomitant]
     Active Substance: HYDROCHLOROTHIAZIDE\TRIAMTERENE
  2. LEVOTHYROXINE. [Concomitant]
     Active Substance: LEVOTHYROXINE
  3. COQ10 [Concomitant]
     Active Substance: UBIDECARENONE
  4. CABOMETYX [Suspect]
     Active Substance: CABOZANTINIB S-MALATE
     Indication: RENAL NEOPLASM
     Dosage: 60 MG, QD
     Dates: start: 20180910, end: 20181024
  5. CARNITINE [Concomitant]
     Active Substance: CARNITINE
  6. CRANBERRY. [Concomitant]
     Active Substance: CRANBERRY
  7. PROBIOTIC [Concomitant]
     Active Substance: PROBIOTICS NOS
  8. FISH OIL [Concomitant]
     Active Substance: FISH OIL
  9. CABOMETYX [Suspect]
     Active Substance: CABOZANTINIB S-MALATE
     Indication: GENITOURINARY TRACT NEOPLASM
     Dosage: 60 MG, QD
  10. MULTIVITAMINS, COMBINATIONS [Concomitant]
     Active Substance: VITAMINS
  11. METOPROLOL SUCCINATE. [Concomitant]
     Active Substance: METOPROLOL SUCCINATE

REACTIONS (14)
  - Weight increased [Not Recovered/Not Resolved]
  - Rectal lesion [Not Recovered/Not Resolved]
  - Muscle spasms [Unknown]
  - Diarrhoea [Unknown]
  - Dyspnoea [Unknown]
  - Platelet count decreased [Recovering/Resolving]
  - Asthenia [Not Recovered/Not Resolved]
  - Blood pressure increased [Unknown]
  - Weight decreased [Recovered/Resolved]
  - Fatigue [Not Recovered/Not Resolved]
  - Death [Fatal]
  - Blood sodium decreased [Unknown]
  - Pericardial effusion [Recovering/Resolving]
  - Rash [Unknown]

NARRATIVE: CASE EVENT DATE: 2018
